FAERS Safety Report 7506272-9 (Version None)
Quarter: 2011Q2

REPORT INFORMATION
  Report Type: 
  Country: None (occurrence: None)
  Receive Date: 20110526
  Receipt Date: 20110525
  Transmission Date: 20111010
  Serious: Yes (Death)
  Sender: FDA-Public Use
  Company Number: US-B.I. PHARMACEUTICALS,INC./RIDGEFIELD-2011-BP-13930BP

PATIENT
  Age: 60 Year

DRUGS (1)
  1. PRADAXA [Suspect]

REACTIONS (1)
  - PULMONARY HAEMORRHAGE [None]
